FAERS Safety Report 11065775 (Version 2)
Quarter: 2015Q2

REPORT INFORMATION
  Report Type: Spontaneous
  Country: US (occurrence: None)
  Receive Date: 20150423
  Receipt Date: 20150528
  Transmission Date: 20150821
  Serious: Yes (Other)
  Sender: FDA-Public Use
  Company Number: US-H14001-15-00577

PATIENT
  Age: 64 Year
  Sex: Male
  Weight: 77.11 kg

DRUGS (6)
  1. DEXAMETHASONE (DEXAMETHASONE) [Suspect]
     Active Substance: DEXAMETHASONE
     Indication: PLASMA CELL MYELOMA
     Route: 048
     Dates: start: 20140408, end: 20150324
  2. VELCADE [Suspect]
     Active Substance: BORTEZOMIB
     Indication: PLASMA CELL MYELOMA
     Route: 058
     Dates: start: 20140408, end: 20150324
  3. AREDIA (PAMIDRONATE DISODIUM) [Concomitant]
     Active Substance: PAMIDRONATE DISODIUM
  4. DEXAMETHASONE (DEXAMETHASONE SODIUM PHOSPHATE) (UNKNOWN) (DEXAMETHASONE SODIUM PHOSPHATE) [Suspect]
     Active Substance: DEXAMETHASONE SODIUM PHOSPHATE
     Indication: PLASMA CELL MYELOMA
     Route: 042
     Dates: start: 20140408, end: 20150324
  5. CYTOXIN [Suspect]
     Active Substance: CYCLOPHOSPHAMIDE
     Indication: PLASMA CELL MYELOMA
     Route: 048
     Dates: start: 20140408, end: 20140626
  6. ABX (ANTIBIOTICS) [Concomitant]

REACTIONS (4)
  - Light chain analysis abnormal [None]
  - Dehydration [None]
  - Acute kidney injury [None]
  - Hypercalcaemia [None]

NARRATIVE: CASE EVENT DATE: 20150331
